FAERS Safety Report 9835521 (Version 1)
Quarter: 2014Q1

REPORT INFORMATION
  Report Type: Spontaneous
  Country: US (occurrence: US)
  Receive Date: 20140122
  Receipt Date: 20140122
  Transmission Date: 20141002
  Serious: No
  Sender: FDA-Public Use
  Company Number: US-BRISTOL-MYERS SQUIBB COMPANY-19715754

PATIENT
  Age: 68 Year
  Sex: Male
  Weight: 77.1 kg

DRUGS (8)
  1. ELIQUIS [Suspect]
     Indication: ATRIAL FIBRILLATION
     Dates: start: 20130812
  2. LIPITOR [Concomitant]
  3. INDERAL [Concomitant]
  4. HYDROCHLOROTHIAZIDE [Concomitant]
  5. KLOR-CON [Concomitant]
  6. METFORMIN [Concomitant]
  7. GLIPIZIDE [Concomitant]
  8. VITAMINS [Concomitant]

REACTIONS (6)
  - Dyspepsia [Unknown]
  - Abdominal distension [Unknown]
  - Flatulence [Unknown]
  - Bowel movement irregularity [Unknown]
  - Weight decreased [Unknown]
  - Abdominal pain upper [Unknown]
